FAERS Safety Report 5120358-8 (Version None)
Quarter: 2006Q4

REPORT INFORMATION
  Report Type: 
  Country: None (occurrence: None)
  Receive Date: 20061004
  Receipt Date: 20060920
  Transmission Date: 20070319
  Serious: Yes (Hospitalization)
  Sender: FDA-Public Use
  Company Number: US-AMGEN-US194144

PATIENT
  Sex: Female

DRUGS (10)
  1. EPOGEN [Suspect]
     Indication: ANAEMIA
     Dates: start: 20060501
  2. ALDACTONE [Concomitant]
  3. DIGOXIN [Concomitant]
  4. BOSENTAN [Concomitant]
  5. SILDENAFIL [Concomitant]
  6. CELLCEPT [Concomitant]
  7. METOLAZONE [Concomitant]
  8. IRON SULFATETHIAMIN COMPOUND TAB [Concomitant]
  9. VICODIN [Concomitant]
  10. LASIX [Concomitant]
     Route: 042

REACTIONS (1)
  - PLASMAPHERESIS [None]
